FAERS Safety Report 8485487 (Version 3)
Quarter: 2013Q1

REPORT INFORMATION
  Report Type: Spontaneous
  Country: JP (occurrence: None)
  Receive Date: 20120302
  Receipt Date: 20121214
  Transmission Date: 20140127
  Serious: Yes (Hospitalization, Other)
  Sender: FDA-Public Use
  Company Number: VAL_00710_2012

PATIENT
  Age: 57 Year
  Sex: Female

DRUGS (3)
  1. ROCALTROL [Suspect]
     Indication: CHRONIC HEPATITIS C
     Dosage: 0.25 UG BID ORAL
     Route: 048
     Dates: start: 20110415, end: 20120209
  2. PEGASYS [Suspect]
     Indication: CHRONIC HEPATITIS C
     Dosage: 135 UG 1X/WEEK DOSAGE IS UNCERTAIN SUBCUTANEUOUS
     Route: 058
     Dates: start: 20110415, end: 20120203
  3. COPEGUS [Suspect]
     Indication: CHRONIC HEPATITIS C
     Dosage: 300 MG BID ORAL DOSAGE IS UNCERTAIN ORAL
     Route: 048
     Dates: start: 20110415, end: 20120209

REACTIONS (1)
  - Platelet count decreased [None]
